FAERS Safety Report 8108102-3 (Version None)
Quarter: 2011Q4

REPORT INFORMATION
  Report Type: 
  Country: None (occurrence: None)
  Receive Date: 20111223
  Receipt Date: 20110318
  Transmission Date: 20120403
  Serious: Yes (Other)
  Sender: FDA-Public Use
  Company Number: 325229

PATIENT
  Age: 71 Year
  Sex: Male
  Weight: 80.7 kg

DRUGS (1)
  1. LEVEMIR [Suspect]
     Indication: TYPE 2 DIABETES MELLITUS
     Dosage: 12 U, BID, SUBCUTANEOUS
     Route: 058
     Dates: start: 20110101, end: 20110317

REACTIONS (1)
  - BLOOD GLUCOSE INCREASED [None]
